FAERS Safety Report 4437704-0 (Version None)
Quarter: 2004Q3

REPORT INFORMATION
  Report Type: 
  Country: None (occurrence: None)
  Receive Date: 20040831
  Receipt Date: 20040119
  Transmission Date: 20050211
  Serious: No
  Sender: FDA-Public Use
  Company Number: US-GLAXOSMITHKLINE-A0493943A

PATIENT
  Age: 35 Year
  Sex: Male

DRUGS (2)
  1. ZOVIRAX [Suspect]
     Dosage: 200MG TWICE PER DAY
     Route: 048
  2. NONE [Concomitant]

REACTIONS (1)
  - AGGRESSION [None]
